FAERS Safety Report 8101240-0 (Version None)
Quarter: 2012Q1

REPORT INFORMATION
  Report Type: 
  Country: None (occurrence: None)
  Receive Date: 20120129
  Receipt Date: 20110919
  Transmission Date: 20120608
  Serious: No
  Sender: FDA-Public Use
  Company Number: US-ABBOTT-11P-163-0856217-00

PATIENT
  Sex: Female

DRUGS (2)
  1. HUMIRA [Suspect]
     Indication: PSORIASIS
     Dosage: 80 MG LOADING DOSE DAY 1
     Route: 058
     Dates: start: 20110922, end: 20110922
  2. HUMIRA [Suspect]
     Route: 058
     Dates: start: 20110922

REACTIONS (3)
  - PAIN [None]
  - INJECTION SITE HAEMATOMA [None]
  - ASTHENIA [None]
